FAERS Safety Report 7410928-6 (Version None)
Quarter: 2011Q2

REPORT INFORMATION
  Report Type: 
  Country: None (occurrence: None)
  Receive Date: 20110413
  Receipt Date: 20110405
  Transmission Date: 20111010
  Serious: Yes (Other)
  Sender: FDA-Public Use
  Company Number: US-PFIZER INC-2011065899

PATIENT
  Sex: Male

DRUGS (6)
  1. LYRICA [Suspect]
     Dosage: FIVE 75MG CAPSULES AND ONE 50MG CAPSULE PER DAY
     Dates: start: 20110101
  2. LYRICA [Suspect]
     Indication: NEUROPATHY PERIPHERAL
     Dosage: 75 MG, 2X/DAY
     Dates: start: 20090801
  3. DEPAKOTE [Concomitant]
     Dosage: UNK
  4. LYRICA [Suspect]
     Dosage: FIVE 75 MG CAPSULES DAILY
     Dates: start: 20110101
  5. NEURONTIN [Suspect]
     Indication: NEURALGIA
  6. NEURONTIN [Suspect]
     Indication: NEUROPATHY PERIPHERAL
     Dosage: UNK

REACTIONS (11)
  - VISION BLURRED [None]
  - EJACULATION DISORDER [None]
  - PARAESTHESIA [None]
  - DIZZINESS [None]
  - WEIGHT INCREASED [None]
  - MICTURITION DISORDER [None]
  - SWELLING [None]
  - HYPOAESTHESIA [None]
  - INSOMNIA [None]
  - PLATELET COUNT DECREASED [None]
  - DRUG INEFFECTIVE [None]
